FAERS Safety Report 7111387-3 (Version None)
Quarter: 2010Q4

REPORT INFORMATION
  Report Type: 
  Country: None (occurrence: None)
  Receive Date: 20101118
  Receipt Date: 20091216
  Transmission Date: 20110411
  Serious: No
  Sender: FDA-Public Use
  Company Number: US-TEVA-218659USA

PATIENT
  Sex: Female

DRUGS (11)
  1. ALBUTEROL SULFATE AUTOHALER [Suspect]
     Indication: ASTHMA
     Dosage: A PUFF AS REQUIRED
     Route: 055
     Dates: start: 20090701
  2. FLUTICASONE PROPIONATE [Suspect]
     Indication: ASTHMA
     Dosage: 1 PUFF TWICE PER DAY
     Route: 055
     Dates: start: 20090723
  3. DILTIAZEM HYDROCHLORIDE [Concomitant]
  4. VALSARTAN [Concomitant]
  5. CITALOPRAM HYDROBROMIDE [Concomitant]
  6. CALCIUM CARBONATE [Concomitant]
  7. DYAZIDE [Concomitant]
  8. NICOTINE [Concomitant]
  9. PRAVASTATIN [Concomitant]
  10. MACROGOL [Concomitant]
  11. ACETYLSALICYLIC ACID SRT [Concomitant]

REACTIONS (2)
  - ARRHYTHMIA [None]
  - LUNG NEOPLASM [None]
